FAERS Safety Report 5974256-8 (Version None)
Quarter: 2008Q4

REPORT INFORMATION
  Report Type: 
  Country: None (occurrence: None)
  Receive Date: 20081128
  Receipt Date: 20081119
  Transmission Date: 20090506
  Serious: Yes (Hospitalization, Other)
  Sender: FDA-Public Use
  Company Number: 1000001792

PATIENT
  Age: 59 Year
  Sex: Female

DRUGS (9)
  1. LEXAPRO [Suspect]
     Indication: DEPRESSION
     Dosage: 10 MG (10 MG, 1 IN 1 D), ORAL
     Route: 048
     Dates: end: 20050101
  2. LEXAPRO [Suspect]
     Indication: DEPRESSION
     Dosage: 10 MG (10 MG, 1 IN 1 D), ORAL
     Route: 048
     Dates: start: 20050101
  3. AVONEX [Concomitant]
  4. LIPITOR [Concomitant]
  5. COZAAR [Concomitant]
  6. SYNTHROID [Concomitant]
  7. CLONAZEPAM [Concomitant]
  8. ASPIRIN [Concomitant]
  9. VITAMINS (NOS) [Concomitant]

REACTIONS (8)
  - ASTHENIA [None]
  - BREAST CANCER [None]
  - DRUG INTERACTION [None]
  - DYSPNOEA [None]
  - FATIGUE [None]
  - HYPOTENSION [None]
  - NOSOCOMIAL INFECTION [None]
  - STAPHYLOCOCCAL INFECTION [None]
